FAERS Safety Report 16931141 (Version 1)
Quarter: 2019Q4

REPORT INFORMATION
  Report Type: Spontaneous
  Country: US (occurrence: US)
  Receive Date: 20190826
  Receipt Date: 20190826
  Transmission Date: 20200122
  Serious: Yes (Life-Threatening, Hospitalization)
  Sender: FDA-Public Use
  Company Number: None

PATIENT
  Age: 57 Year
  Sex: Male
  Weight: 73.03 kg

DRUGS (15)
  1. FENTANYL. [Concomitant]
     Active Substance: FENTANYL
  2. GABAPENTIN. [Concomitant]
     Active Substance: GABAPENTIN
  3. CHOLECALCIFEROL [Concomitant]
     Active Substance: CHOLECALCIFEROL
  4. VITAMIN B12 [Concomitant]
     Active Substance: CYANOCOBALAMIN
  5. OMEPRAZOLE. [Concomitant]
     Active Substance: OMEPRAZOLE
  6. AMLODIPINE [Concomitant]
     Active Substance: AMLODIPINE BESYLATE
  7. BUSPIRONE [Concomitant]
     Active Substance: BUSPIRONE HYDROCHLORIDE
  8. FLUOXETINE [Concomitant]
     Active Substance: FLUOXETINE HYDROCHLORIDE
  9. GATTEX [Suspect]
     Active Substance: TEDUGLUTIDE\WATER
     Indication: SHORT-BOWEL SYNDROME
     Route: 058
     Dates: start: 20180507, end: 20190730
  10. ENTYVIO [Concomitant]
     Active Substance: VEDOLIZUMAB
  11. BUDESONIDE EC [Concomitant]
     Active Substance: BUDESONIDE
  12. TESTOSTERONE. [Concomitant]
     Active Substance: TESTOSTERONE
  13. ABILIFY [Concomitant]
     Active Substance: ARIPIPRAZOLE
  14. ATENOLOL. [Concomitant]
     Active Substance: ATENOLOL
  15. FERROUS SULFATE. [Concomitant]
     Active Substance: FERROUS SULFATE

REACTIONS (5)
  - Cholelithiasis [None]
  - Cholecystitis chronic [None]
  - Abdominal abscess [None]
  - Malnutrition [None]
  - Pancreatic carcinoma [None]

NARRATIVE: CASE EVENT DATE: 20190730
